FAERS Safety Report 6915381-4 (Version None)
Quarter: 2010Q3

REPORT INFORMATION
  Report Type: 
  Country: None (occurrence: None)
  Receive Date: 20100809
  Receipt Date: 20100113
  Transmission Date: 20110219
  Serious: No
  Sender: FDA-Public Use
  Company Number: US-ABBOTT-10P-163-0620024-00

PATIENT
  Age: 28 Year
  Sex: Male

DRUGS (1)
  1. DEPAKOTE ER [Suspect]
     Indication: DEPRESSION
     Dosage: UNKNOWN DOSE

REACTIONS (3)
  - ANXIETY [None]
  - DEPRESSION [None]
  - SLEEP APNOEA SYNDROME [None]
